FAERS Safety Report 10522041 (Version 1)
Quarter: 2014Q4

REPORT INFORMATION
  Report Type: Spontaneous
  Country: US (occurrence: None)
  Receive Date: 20141014
  Receipt Date: 20141014
  Transmission Date: 20150528
  Serious: Yes (Life-Threatening)
  Sender: FDA-Public Use
  Company Number: None

PATIENT
  Age: 64 Year
  Sex: Male
  Weight: 79 kg

DRUGS (3)
  1. GABAPENTIN. [Suspect]
     Active Substance: GABAPENTIN
     Indication: MENTAL STATUS CHANGES
     Route: 048
     Dates: start: 20130923, end: 20130924
  2. GABAPENTIN. [Suspect]
     Active Substance: GABAPENTIN
     Indication: SEIZURE
     Route: 048
     Dates: start: 20130923, end: 20130924
  3. GABAPENTIN. [Suspect]
     Active Substance: GABAPENTIN
     Indication: PYREXIA
     Route: 048
     Dates: start: 20130923, end: 20130924

REACTIONS (6)
  - Confusional state [None]
  - Mental status changes [None]
  - Sepsis [None]
  - Seizure [None]
  - Pyrexia [None]
  - Localised infection [None]

NARRATIVE: CASE EVENT DATE: 20130924
